FAERS Safety Report 9377569 (Version 1)
Quarter: 2013Q3

REPORT INFORMATION
  Report Type: Report from Study
  Country: US (occurrence: US)
  Receive Date: 20130701
  Receipt Date: 20130701
  Transmission Date: 20140515
  Serious: Yes (Hospitalization)
  Sender: FDA-Public Use
  Company Number: US-ABBOTT-13P-163-1109058-00

PATIENT
  Age: 32 Year
  Sex: Female
  Weight: 86.26 kg

DRUGS (2)
  1. LUPRON DEPOT [Suspect]
     Indication: UTERINE LEIOMYOMA
     Dosage: SHIPPED TO PATIENT FROM PHARMACY ON ?25-MAR-2013. ONE INJECTION.
     Route: 030
     Dates: start: 201303, end: 201305
  2. VICODIN [Concomitant]
     Indication: PRODUCT USED FOR UNKNOWN INDICATION

REACTIONS (5)
  - Haemorrhage [Recovered/Resolved]
  - Pyrexia [Recovered/Resolved]
  - Drug ineffective [Not Recovered/Not Resolved]
  - Feeling hot [Recovered/Resolved]
  - Ovarian adhesion [Not Recovered/Not Resolved]
